FAERS Safety Report 25025243 (Version 1)
Quarter: 2025Q1

REPORT INFORMATION
  Report Type: Spontaneous
  Country: RU (occurrence: RU)
  Receive Date: 20250228
  Receipt Date: 20250228
  Transmission Date: 20250409
  Serious: Yes (Other)
  Sender: BAUSCH AND LOMB
  Company Number: RU-BAUSCH-BL-2025-002703

PATIENT
  Age: 45 Year
  Sex: Female

DRUGS (5)
  1. RIFAXIMIN [Suspect]
     Active Substance: RIFAXIMIN
     Indication: Gastrointestinal microorganism overgrowth
     Route: 048
     Dates: start: 2022
  2. RIFAXIMIN [Suspect]
     Active Substance: RIFAXIMIN
     Route: 048
     Dates: start: 2024, end: 2024
  3. DUPHASTON [Concomitant]
     Active Substance: DYDROGESTERONE
     Indication: Ovarian cyst
  4. DIMETHICONE\GUAIAZULENE [Concomitant]
     Active Substance: DIMETHICONE\GUAIAZULENE
     Indication: Product used for unknown indication
  5. LACTASAR [Concomitant]
     Indication: Product used for unknown indication

REACTIONS (3)
  - Hepatic encephalopathy [Unknown]
  - Oligomenorrhoea [Unknown]
  - Ovarian cyst [Unknown]
